FAERS Safety Report 10044995 (Version 2)
Quarter: 2014Q1

REPORT INFORMATION
  Report Type: Spontaneous
  Country: US (occurrence: US)
  Receive Date: 20140328
  Receipt Date: 20140328
  Transmission Date: 20141002
  Serious: Yes (Hospitalization, Other)
  Sender: FDA-Public Use
  Company Number: US-ABBVIE-14P-163-1212570-00

PATIENT
  Sex: Male

DRUGS (3)
  1. HUMIRA [Suspect]
     Indication: PSORIASIS
     Dates: start: 20140102, end: 20140102
  2. HUMIRA [Suspect]
     Dates: start: 20140109
  3. UNKNOWN MEDICATION [Concomitant]
     Indication: PSORIASIS
     Route: 061

REACTIONS (4)
  - Respiratory failure [Recovered/Resolved]
  - Renal failure [Recovered/Resolved]
  - Cellulitis [Unknown]
  - Infection [Unknown]
